FAERS Safety Report 20502668 (Version 1)
Quarter: 2022Q1

REPORT INFORMATION
  Report Type: Spontaneous
  Country: FR (occurrence: FR)
  Receive Date: 20220222
  Receipt Date: 20220222
  Transmission Date: 20220424
  Serious: Yes (Congenital Anomaly, Other)
  Sender: FDA-Public Use
  Company Number: FR-ABBVIE-22K-056-4282426-00

PATIENT
  Sex: Female
  Weight: 3.66 kg

DRUGS (2)
  1. VALPROATE SODIUM [Suspect]
     Active Substance: VALPROATE SODIUM
     Indication: Maternal exposure timing unspecified
     Route: 064
  2. FOLIC ACID [Concomitant]
     Active Substance: FOLIC ACID
     Indication: Product used for unknown indication

REACTIONS (34)
  - Dysarthria [Unknown]
  - Seborrhoea [Unknown]
  - Synovial cyst [Unknown]
  - Discomfort [Unknown]
  - Strabismus [Unknown]
  - Aphasia [Unknown]
  - Scoliosis [Unknown]
  - Myopia [Unknown]
  - Knee deformity [Unknown]
  - Limb asymmetry [Unknown]
  - Auditory disorder [Unknown]
  - Developmental delay [Unknown]
  - Fine motor skill dysfunction [Unknown]
  - Psychomotor skills impaired [Unknown]
  - Dysmorphism [Unknown]
  - Nose deformity [Unknown]
  - Neonatal respiratory distress [Unknown]
  - Abnormal faeces [Unknown]
  - Limb malformation [Unknown]
  - Speech disorder developmental [Unknown]
  - Cognitive disorder [Unknown]
  - Eye discharge [Unknown]
  - Auditory disorder [Unknown]
  - Learning disorder [Unknown]
  - Finger amputation [Unknown]
  - Epiphysitis [Unknown]
  - Reading disorder [Unknown]
  - Dysarthria [Unknown]
  - Renal cyst [Unknown]
  - Limb malformation [Unknown]
  - Developmental delay [Unknown]
  - Ear, nose and throat disorder [Unknown]
  - Hypertelorism [Unknown]
  - Foetal exposure during pregnancy [Unknown]
